FAERS Safety Report 7655643-9 (Version None)
Quarter: 2011Q3

REPORT INFORMATION
  Report Type: 
  Country: None (occurrence: None)
  Receive Date: 20110729
  Receipt Date: 20110715
  Transmission Date: 20111222
  Serious: Yes (Hospitalization)
  Sender: FDA-Public Use
  Company Number: AUR-APL-2011-01483

PATIENT
  Age: 21 Year
  Sex: Male

DRUGS (5)
  1. CLOZAPINE [Suspect]
     Indication: PRODUCT USED FOR UNKNOWN INDICATION
     Dosage: 500 MG
  2. HALOPERIDOL [Suspect]
     Indication: PRODUCT USED FOR UNKNOWN INDICATION
  3. RISPERIDONE [Suspect]
     Indication: PRODUCT USED FOR UNKNOWN INDICATION
     Dosage: 2 MG (1 MG, 2 IN 1 D)
  4. QUETIAPINE FUMARATE [Suspect]
     Indication: PRODUCT USED FOR UNKNOWN INDICATION
  5. AMISULPRIDE (AMUSULPRIDE) [Suspect]
     Indication: PRODUCT USED FOR UNKNOWN INDICATION
     Dosage: 100 MG, 200 MG

REACTIONS (17)
  - WAXY FLEXIBILITY [None]
  - ABNORMAL BEHAVIOUR [None]
  - SPEECH DISORDER [None]
  - NOCTURIA [None]
  - POLLAKIURIA [None]
  - PARANOIA [None]
  - SOCIAL AVOIDANT BEHAVIOUR [None]
  - ILLUSION [None]
  - HALLUCINATION, AUDITORY [None]
  - WEIGHT DECREASED [None]
  - TREATMENT NONCOMPLIANCE [None]
  - THERAPEUTIC RESPONSE DECREASED [None]
  - DRUG INEFFECTIVE [None]
  - PSYCHOTIC DISORDER [None]
  - IMPAIRED SELF-CARE [None]
  - POSTURING [None]
  - INCONTINENCE [None]
